APPROVED DRUG PRODUCT: METFORMIN HYDROCHLORIDE
Active Ingredient: METFORMIN HYDROCHLORIDE
Strength: 500MG
Dosage Form/Route: TABLET, EXTENDED RELEASE;ORAL
Application: A203755 | Product #001 | TE Code: AB3
Applicant: ACTAVIS LABORATORIES FL INC
Approved: Aug 1, 2016 | RLD: No | RS: No | Type: RX